FAERS Safety Report 19380038 (Version 1)
Quarter: 2021Q2

REPORT INFORMATION
  Report Type: Spontaneous
  Country: US (occurrence: US)
  Receive Date: 20210607
  Receipt Date: 20210607
  Transmission Date: 20210717
  Serious: No
  Sender: FDA-Public Use
  Company Number: US-AMGEN-USASP2021082574

PATIENT

DRUGS (3)
  1. EPOGEN [Suspect]
     Active Substance: ERYTHROPOIETIN
     Indication: NEPHROGENIC ANAEMIA
     Dosage: UNK UNK, QWK
     Route: 042
  2. IRON DEXTRAN [Concomitant]
     Active Substance: IRON DEXTRAN
     Route: 042
  3. EPOGEN [Suspect]
     Active Substance: ERYTHROPOIETIN
     Dosage: UNK UNK, QWK
     Route: 058

REACTIONS (1)
  - Injection site pain [Unknown]
